FAERS Safety Report 18180793 (Version 1)
Quarter: 2020Q3

REPORT INFORMATION
  Report Type: Spontaneous
  Country: US (occurrence: US)
  Receive Date: 20200820
  Receipt Date: 20200820
  Transmission Date: 20201103
  Serious: No
  Sender: FDA-Public Use
  Company Number: None

PATIENT

DRUGS (1)
  1. TOPIRAMATE TAB 25MG [Suspect]
     Active Substance: TOPIRAMATE
     Indication: PAIN
     Route: 048
     Dates: start: 20200715, end: 20200720

REACTIONS (5)
  - Gait inability [None]
  - Pain in extremity [None]
  - Dysstasia [None]
  - Discomfort [None]
  - Drug interaction [None]

NARRATIVE: CASE EVENT DATE: 20200723
